FAERS Safety Report 11107188 (Version 1)
Quarter: 2015Q2

REPORT INFORMATION
  Report Type: Spontaneous
  Country: US (occurrence: None)
  Receive Date: 20150511
  Receipt Date: 20150511
  Transmission Date: 20150821
  Serious: No
  Sender: FDA-Public Use
  Company Number: None

PATIENT
  Age: 28 Year
  Sex: Female
  Weight: 90.72 kg

DRUGS (4)
  1. MONISTAT [Suspect]
     Active Substance: MICONAZOLE NITRATE
     Indication: BURNING SENSATION
     Dosage: EXTERNAL VULAR CREAM
     Route: 067
  2. MONISTAT [Suspect]
     Active Substance: MICONAZOLE NITRATE
     Indication: VULVOVAGINAL MYCOTIC INFECTION
     Dosage: EXTERNAL VULAR CREAM
     Route: 067
  3. MONISTAT [Suspect]
     Active Substance: MICONAZOLE NITRATE
     Indication: PRURITUS
     Dosage: EXTERNAL VULAR CREAM
     Route: 067
  4. DIFLUCAN [Concomitant]
     Active Substance: FLUCONAZOLE

REACTIONS (5)
  - Pruritus [None]
  - Application site swelling [None]
  - Application site irritation [None]
  - Application site pain [None]
  - Application site erythema [None]

NARRATIVE: CASE EVENT DATE: 20150509
